FAERS Safety Report 18566897 (Version 1)
Quarter: 2020Q4

REPORT INFORMATION
  Report Type: Report from Study
  Country: BR (occurrence: BR)
  Receive Date: 20201201
  Receipt Date: 20201201
  Transmission Date: 20210114
  Serious: Yes (Hospitalization, Other)
  Sender: FDA-Public Use
  Company Number: BR-JNJFOC-20201143269

PATIENT
  Sex: Female
  Weight: 21 kg

DRUGS (2)
  1. MIGLUSTAT. [Suspect]
     Active Substance: MIGLUSTAT
     Route: 065
     Dates: start: 202010
  2. MIGLUSTAT. [Suspect]
     Active Substance: MIGLUSTAT
     Indication: NIEMANN-PICK DISEASE
     Route: 065
     Dates: start: 20150601, end: 2019

REACTIONS (3)
  - Respiratory failure [Not Recovered/Not Resolved]
  - Tracheitis [Not Recovered/Not Resolved]
  - Lung disorder [Not Recovered/Not Resolved]
